FAERS Safety Report 9813120 (Version 1)
Quarter: 2014Q1

REPORT INFORMATION
  Report Type: Spontaneous
  Country: GB (occurrence: GB)
  Receive Date: 20140113
  Receipt Date: 20140113
  Transmission Date: 20141002
  Serious: Yes (Other)
  Sender: FDA-Public Use
  Company Number: GB-SA-2014SA002189

PATIENT
  Age: 57 Year
  Sex: Female
  Weight: 68.4 kg

DRUGS (4)
  1. LEFLUNOMIDE [Suspect]
     Indication: RHEUMATOID ARTHRITIS
     Route: 048
     Dates: start: 20131114, end: 20131116
  2. METHOTREXATE [Concomitant]
     Indication: RHEUMATOID ARTHRITIS
     Dosage: ONGOING
     Route: 058
     Dates: start: 201307
  3. FOLIC ACID [Concomitant]
  4. TRAMADOL [Concomitant]
     Dosage: ONGOING

REACTIONS (5)
  - Dysphagia [Recovered/Resolved]
  - Dermatitis exfoliative [Recovered/Resolved]
  - Skin exfoliation [Recovered/Resolved]
  - Mouth ulceration [Recovered/Resolved]
  - Dyspnoea [Recovered/Resolved]
